FAERS Safety Report 7428919-8 (Version None)
Quarter: 2011Q2

REPORT INFORMATION
  Report Type: 
  Country: None (occurrence: None)
  Receive Date: 20110415
  Receipt Date: 20110415
  Transmission Date: 20111010
  Serious: Yes (Death, Life-Threatening, Hospitalization, Other)
  Sender: FDA-Public Use
  Company Number: None

PATIENT
  Sex: Female
  Weight: 60.3284 kg

DRUGS (2)
  1. OLANZAPINE [Suspect]
     Indication: DEPRESSION
  2. SERTRALINE 100MG [Suspect]
     Indication: DEPRESSION

REACTIONS (4)
  - CARDIAC DISORDER [None]
  - OVERDOSE [None]
  - DYSPNOEA [None]
  - LUNG DISORDER [None]
